FAERS Safety Report 4980623-1 (Version None)
Quarter: 2006Q2

REPORT INFORMATION
  Report Type: 
  Country: None (occurrence: None)
  Receive Date: 20060424
  Receipt Date: 20060329
  Transmission Date: 20061013
  Serious: Yes (Death)
  Sender: FDA-Public Use
  Company Number: JP-ROCHE-442742

PATIENT
  Age: 65 Year
  Sex: Male
  Weight: 70 kg

DRUGS (3)
  1. PEGASYS [Suspect]
     Dosage: DRUG REPORTED AS PEGASYS 90.
     Route: 058
     Dates: start: 20050804, end: 20060315
  2. NEO-MINOPHAGEN C [Concomitant]
     Route: 042
     Dates: start: 19920715, end: 20060315
  3. URSO [Concomitant]
     Route: 048
     Dates: start: 19920715, end: 20060315

REACTIONS (2)
  - CEREBRAL HAEMORRHAGE [None]
  - LOSS OF CONSCIOUSNESS [None]
